FAERS Safety Report 5989163-4 (Version None)
Quarter: 2008Q4

REPORT INFORMATION
  Report Type: 
  Country: None (occurrence: None)
  Receive Date: 20081204
  Receipt Date: 20081116
  Transmission Date: 20090506
  Serious: Yes (Hospitalization)
  Sender: FDA-Public Use
  Company Number: 2008BM000206

PATIENT
  Age: 7 Year
  Sex: Male
  Weight: 22 kg

DRUGS (1)
  1. NAGLAZYME [Suspect]
     Indication: MUCOPOLYSACCHARIDOSIS
     Dosage: 25 MG; QW; IV_DRP
     Route: 041
     Dates: start: 20061107

REACTIONS (3)
  - DEAFNESS [None]
  - DISEASE RECURRENCE [None]
  - OTITIS MEDIA [None]
